FAERS Safety Report 5567762-1 (Version None)
Quarter: 2007Q4

REPORT INFORMATION
  Report Type: 
  Country: None (occurrence: None)
  Receive Date: 20071219
  Receipt Date: 20071217
  Transmission Date: 20080405
  Serious: Yes (Hospitalization, Other)
  Sender: FDA-Public Use
  Company Number: DE-BRISTOL-MYERS SQUIBB COMPANY-14008460

PATIENT
  Age: 49 Year
  Sex: Male

DRUGS (1)
  1. ORENCIA [Suspect]
     Dosage: 4TH INFUSION WAS ON 17-NOV-2007.
     Route: 042
     Dates: start: 20071117

REACTIONS (2)
  - DYSPNOEA [None]
  - MYOCARDITIS [None]
